FAERS Safety Report 7545262-7 (Version None)
Quarter: 2011Q2

REPORT INFORMATION
  Report Type: 
  Country: None (occurrence: None)
  Receive Date: 20110614
  Receipt Date: 20110526
  Transmission Date: 20111010
  Serious: No
  Sender: FDA-Public Use
  Company Number: US-B.I. PHARMACEUTICALS,INC./RIDGEFIELD-2011-BP-14097BP

PATIENT
  Age: 53 Year
  Sex: Female

DRUGS (3)
  1. NEURONTIN [Concomitant]
  2. ZANTAC 150 [Suspect]
     Indication: GASTROOESOPHAGEAL REFLUX DISEASE
  3. ZANTAC 150 [Suspect]
     Indication: DYSPEPSIA
     Dosage: 450 MG
     Route: 048
     Dates: start: 20060101

REACTIONS (2)
  - COUGH [None]
  - HEART RATE INCREASED [None]
